FAERS Safety Report 7587445-6 (Version None)
Quarter: 2011Q3

REPORT INFORMATION
  Report Type: 
  Country: None (occurrence: None)
  Receive Date: 20110704
  Receipt Date: 20110621
  Transmission Date: 20111222
  Serious: No
  Sender: FDA-Public Use
  Company Number: US-BIOGENIDEC-2011BI023062

PATIENT
  Age: 52 Year
  Sex: Female

DRUGS (1)
  1. AVONEX [Suspect]
     Indication: MULTIPLE SCLEROSIS
     Route: 030
     Dates: start: 20100401

REACTIONS (5)
  - PERIPHERAL COLDNESS [None]
  - FATIGUE [None]
  - PAIN IN EXTREMITY [None]
  - HYPOAESTHESIA [None]
  - ARTHRALGIA [None]
